FAERS Safety Report 4982334-5 (Version None)
Quarter: 2006Q2

REPORT INFORMATION
  Report Type: 
  Country: None (occurrence: None)
  Receive Date: 20060419
  Receipt Date: 20060404
  Transmission Date: 20061013
  Serious: Yes (Hospitalization)
  Sender: FDA-Public Use
  Company Number: 2006US000492

PATIENT
  Age: 57 Year
  Sex: Male

DRUGS (2)
  1. PROTOPIC [Suspect]
     Indication: ECZEMA
     Dosage: PRN, TOPICAL
     Route: 061
  2. VALTREX [Concomitant]

REACTIONS (2)
  - CELLULITIS [None]
  - HERPES ZOSTER [None]
